FAERS Safety Report 7115349-1 (Version None)
Quarter: 2010Q4

REPORT INFORMATION
  Report Type: 
  Country: None (occurrence: None)
  Receive Date: 20101122
  Receipt Date: 20101110
  Transmission Date: 20110411
  Serious: Yes (Other)
  Sender: FDA-Public Use
  Company Number: JP-BRISTOL-MYERS SQUIBB COMPANY-15393648

PATIENT
  Age: 49 Year
  Sex: Female

DRUGS (4)
  1. CISPLATIN [Suspect]
     Indication: METASTASES TO LUNG
     Dosage: 30MGX5
     Route: 041
  2. CISPLATIN [Suspect]
     Indication: UTERINE LEIOMYOSARCOMA
     Dosage: 30MGX5
     Route: 041
  3. ETOPOSIDE [Suspect]
     Indication: METASTASES TO LUNG
     Dosage: 100MGX5
  4. ETOPOSIDE [Suspect]
     Indication: UTERINE LEIOMYOSARCOMA
     Dosage: 100MGX5

REACTIONS (1)
  - INAPPROPRIATE ANTIDIURETIC HORMONE SECRETION [None]
